FAERS Safety Report 4492632-X (Version None)
Quarter: 2004Q4

REPORT INFORMATION
  Report Type: 
  Country: None (occurrence: None)
  Receive Date: 20041103
  Receipt Date: 20041029
  Transmission Date: 20050328
  Serious: Yes (Other)
  Sender: FDA-Public Use
  Company Number: 003101

PATIENT
  Sex: Female

DRUGS (4)
  1. MEDROXYPROGESTERONE ACETATE [Suspect]
     Dates: start: 19990101, end: 20010101
  2. PREMARIN [Suspect]
     Dates: start: 19990101, end: 20010101
  3. PROVERA [Suspect]
     Dates: start: 19990101, end: 20010101
  4. PREMPHASE (PREMARIN;CYCRIN 14/14) [Suspect]
     Dates: start: 19990101, end: 20010101

REACTIONS (1)
  - BREAST CANCER FEMALE [None]
